FAERS Safety Report 9735726 (Version 1)
Quarter: 2013Q4

REPORT INFORMATION
  Report Type: Spontaneous
  Country: GB (occurrence: GB)
  Receive Date: 20131206
  Receipt Date: 20131206
  Transmission Date: 20140711
  Serious: Yes (Life-Threatening)
  Sender: FDA-Public Use
  Company Number: GB-BAYER-2013-146649

PATIENT
  Sex: Male

DRUGS (7)
  1. CIPROFLOXACIN [Suspect]
     Dosage: 500 MG, UNK
     Route: 048
     Dates: end: 20131110
  2. CICLOSPORIN [Suspect]
     Dosage: 175 MG, UNK
     Route: 048
     Dates: end: 20131112
  3. SIMVASTATIN [Suspect]
     Dosage: 40 MG, UNK
     Route: 048
     Dates: end: 20131110
  4. ACICLOVIR [Concomitant]
     Dosage: 40 MG, UNK
     Route: 048
     Dates: end: 20131115
  5. IRBESARTAN [Concomitant]
     Dosage: 75 MG, UNK
     Route: 048
     Dates: end: 20131113
  6. OMEPRAZOLE [Concomitant]
     Dosage: 20 MG, UNK
     Route: 048
  7. POSACONAZOLE [Concomitant]
     Dosage: 200 MG, UNK
     Route: 048
     Dates: end: 20131113

REACTIONS (1)
  - Rhabdomyolysis [Not Recovered/Not Resolved]
